FAERS Safety Report 9747632 (Version 1)
Quarter: 2013Q4

REPORT INFORMATION
  Report Type: Report from Study
  Country: AU (occurrence: AU)
  Receive Date: 20131212
  Receipt Date: 20131212
  Transmission Date: 20140711
  Serious: Yes (Death)
  Sender: FDA-Public Use
  Company Number: AU-ASTRAZENECA-2013SE89579

PATIENT
  Age: 51 Year
  Sex: 0

DRUGS (1)
  1. FULVESTRANT [Suspect]
     Dosage: 250MG/5ML
     Route: 030

REACTIONS (1)
  - Death [Fatal]
